FAERS Safety Report 14611068 (Version 1)
Quarter: 2018Q1

REPORT INFORMATION
  Report Type: Spontaneous
  Country: US (occurrence: US)
  Receive Date: 20180308
  Receipt Date: 20180308
  Transmission Date: 20180509
  Serious: No
  Sender: FDA-Public Use
  Company Number: US-BRISTOL-MYERS SQUIBB COMPANY-BMS-2018-021100

PATIENT
  Sex: Female
  Weight: 131.52 kg

DRUGS (1)
  1. ELIQUIS [Suspect]
     Active Substance: APIXABAN
     Indication: CEREBROVASCULAR ACCIDENT PROPHYLAXIS
     Dosage: UNK, BID
     Route: 048

REACTIONS (6)
  - Blood urine present [Unknown]
  - Fungal infection [Unknown]
  - Hypotension [Unknown]
  - Urinary tract infection [Unknown]
  - Dizziness [Unknown]
  - Headache [Unknown]
